FAERS Safety Report 7351006-4 (Version None)
Quarter: 2011Q1

REPORT INFORMATION
  Report Type: 
  Country: None (occurrence: None)
  Receive Date: 20110314
  Receipt Date: 20110307
  Transmission Date: 20110831
  Serious: Yes (Hospitalization)
  Sender: FDA-Public Use
  Company Number: PHHY2011FR17433

PATIENT
  Sex: Female
  Weight: 69 kg

DRUGS (4)
  1. RIFAMPICIN [Suspect]
     Indication: BACILLUS INFECTION
     Dosage: 600 MG/DAY
     Dates: start: 20100730, end: 20100802
  2. HEPARIN [Suspect]
  3. DAPTOMYCIN [Suspect]
     Indication: STAPHYLOCOCCAL MEDIASTINITIS
     Dosage: 6 MG/KG/48H
     Dates: start: 20100730
  4. DAPTOMYCIN [Suspect]
     Indication: STAPHYLOCOCCAL INFECTION
     Dosage: 6 MG/KG/24H
     Route: 042
     Dates: end: 20100806

REACTIONS (4)
  - BLOOD CREATININE INCREASED [None]
  - CHOLESTASIS [None]
  - RENAL FAILURE [None]
  - THROMBOCYTOPENIA [None]
